FAERS Safety Report 18940805 (Version 1)
Quarter: 2021Q1

REPORT INFORMATION
  Report Type: Spontaneous
  Country: DO (occurrence: DO)
  Receive Date: 20210225
  Receipt Date: 20210225
  Transmission Date: 20210420
  Serious: Yes (Death, Other)
  Sender: FDA-Public Use
  Company Number: DO-009507513-2102DOM008243

PATIENT
  Sex: Female

DRUGS (1)
  1. KEYTRUDA [Suspect]
     Active Substance: PEMBROLIZUMAB
     Indication: PANCREATIC CARCINOMA
     Dosage: UNK

REACTIONS (3)
  - Death [Fatal]
  - Product use in unapproved indication [Unknown]
  - Malignant neoplasm progression [Unknown]
